FAERS Safety Report 10100678 (Version 4)
Quarter: 2014Q2

REPORT INFORMATION
  Report Type: Report from Study
  Country: US (occurrence: US)
  Receive Date: 20140423
  Receipt Date: 20140630
  Transmission Date: 20141212
  Serious: Yes (Death, Hospitalization)
  Sender: FDA-Public Use
  Company Number: US-ACTELION-A-US2014-97475

PATIENT
  Age: 81 Year
  Sex: Female

DRUGS (2)
  1. TRACLEER [Suspect]
     Indication: PULMONARY ARTERIAL HYPERTENSION
     Dosage: UNK
     Route: 048
  2. TYVASO [Concomitant]

REACTIONS (9)
  - Death [Fatal]
  - Fall [Unknown]
  - Femoral neck fracture [Unknown]
  - Hip fracture [Unknown]
  - Urinary tract infection [Unknown]
  - Pyrexia [Unknown]
  - Respiratory failure [Unknown]
  - Dyspnoea [Unknown]
  - Hypoxia [Unknown]
